FAERS Safety Report 8816340 (Version 1)
Quarter: 2012Q4

REPORT INFORMATION
  Report Type: Spontaneous
  Country: US (occurrence: None)
  Receive Date: 20120928
  Receipt Date: 20120928
  Transmission Date: 20130627
  Serious: No
  Sender: FDA-Public Use
  Company Number: None

PATIENT
  Sex: Female
  Weight: 72.58 kg

DRUGS (1)
  1. COPAXONE [Suspect]
     Indication: MS
     Dosage: 20mg/ 1ML, injection, nightly
     Dates: start: 2009

REACTIONS (1)
  - Amnesia [None]
